FAERS Safety Report 4362818-3 (Version None)
Quarter: 2004Q2

REPORT INFORMATION
  Report Type: 
  Country: None (occurrence: None)
  Receive Date: 20040524
  Receipt Date: 20040517
  Transmission Date: 20050107
  Serious: Yes (Hospitalization)
  Sender: FDA-Public Use
  Company Number: US-BRISTOL-MYERS SQUIBB COMPANY-12588679

PATIENT
  Age: 58 Year
  Sex: Female
  Weight: 146 kg

DRUGS (6)
  1. GLUCOVANCE [Suspect]
     Indication: DIABETES MELLITUS
     Dosage: DISCONTINUED GLUCOVANCE ^THREE OR FOUR DAYS AGO^
     Route: 048
  2. BUSPAR [Concomitant]
     Dates: start: 20040414
  3. AMBIEN [Concomitant]
     Dates: start: 20040430
  4. MOBIC [Concomitant]
     Dates: start: 20040430
  5. ATENOLOL [Concomitant]
     Dates: start: 20040430
  6. LANTUS [Concomitant]
     Dosage: DOSE:  50 UNITS

REACTIONS (5)
  - ARRHYTHMIA [None]
  - CHEST PAIN [None]
  - DYSPNOEA [None]
  - FATIGUE [None]
  - PAIN [None]
